FAERS Safety Report 14498204 (Version 1)
Quarter: 2018Q1

REPORT INFORMATION
  Report Type: Report from Study
  Country: US (occurrence: US)
  Receive Date: 20180207
  Receipt Date: 20180207
  Transmission Date: 20180509
  Serious: Yes (Hospitalization)
  Sender: FDA-Public Use
  Company Number: US-BAYER-2017-212446

PATIENT
  Age: 64 Year
  Sex: Male

DRUGS (3)
  1. STIVARGA [Suspect]
     Active Substance: REGORAFENIB
     Indication: RECTAL CANCER
     Dosage: 160 MG, QD
     Route: 048
     Dates: start: 20171011, end: 2017
  2. STIVARGA [Suspect]
     Active Substance: REGORAFENIB
     Indication: HEPATIC CANCER
     Dosage: DAILY DOSE 160 MG
     Route: 048
     Dates: start: 2017, end: 2017
  3. STIVARGA [Suspect]
     Active Substance: REGORAFENIB
     Indication: RECTAL CANCER
     Dosage: 160 MG, QD X 21 DAYS
     Route: 048
     Dates: start: 20171011

REACTIONS (7)
  - Throat irritation [None]
  - Dysphonia [None]
  - Dysphonia [None]
  - Hepatic enzyme increased [None]
  - Diarrhoea [None]
  - Hospitalisation [None]
  - Blood pressure increased [None]

NARRATIVE: CASE EVENT DATE: 2017
